FAERS Safety Report 4415731-7 (Version None)
Quarter: 2004Q2

REPORT INFORMATION
  Report Type: 
  Country: None (occurrence: None)
  Receive Date: 20040630
  Receipt Date: 20040308
  Transmission Date: 20050107
  Serious: Yes (Hospitalization, Other)
  Sender: FDA-Public Use
  Company Number: 2004016174

PATIENT
  Age: 25 Year
  Sex: Female

DRUGS (4)
  1. ZOLOFT [Suspect]
     Indication: ILL-DEFINED DISORDER
     Dosage: 200 MG (UNKNOWN) , UNKNOWN
  2. GEODON [Suspect]
     Indication: ILL-DEFINED DISORDER
     Dosage: 40 MG (UNKNOWN), ORAL
     Route: 048
     Dates: start: 20040101
  3. ZOLPIDEM TARTRATE [Concomitant]
  4. PROPACET (PARACETAMOL, DEXTROPROPOXYPHEN NAPSILATE) [Concomitant]

REACTIONS (4)
  - AMNESIA [None]
  - CONFUSIONAL STATE [None]
  - CRYING [None]
  - DEPRESSION [None]
